FAERS Safety Report 14373417 (Version 2)
Quarter: 2018Q3

REPORT INFORMATION
  Report Type: Spontaneous
  Country: US (occurrence: US)
  Receive Date: 20180110
  Receipt Date: 20180824
  Transmission Date: 20181010
  Serious: No
  Sender: FDA-Public Use
  Company Number: US-TAKEDA-2018TUS000518

PATIENT
  Sex: Female
  Weight: 97.51 kg

DRUGS (3)
  1. ENTYVIO [Suspect]
     Active Substance: VEDOLIZUMAB
     Indication: PRODUCT USED FOR UNKNOWN INDICATION
     Dosage: 300 MG, UNK
     Route: 042
  2. LEVOTHYROXINE                      /00068002/ [Concomitant]
     Active Substance: LEVOTHYROXINE
     Dosage: 25 UG, UNK
     Route: 048
  3. PNV [Concomitant]
     Dosage: UNK
     Route: 048

REACTIONS (2)
  - Pregnancy [Recovered/Resolved]
  - No adverse event [Unknown]
